FAERS Safety Report 8437701-4 (Version None)
Quarter: 2012Q2

REPORT INFORMATION
  Report Type: 
  Country: None (occurrence: None)
  Receive Date: 20120614
  Receipt Date: 20120501
  Transmission Date: 20120825
  Serious: No
  Sender: FDA-Public Use
  Company Number: US-AMGEN-USASP2012027646

PATIENT
  Sex: Female

DRUGS (3)
  1. VITAMIN D [Concomitant]
     Dosage: UNK UNK, QD
  2. PROLIA [Suspect]
     Indication: OSTEOPOROSIS
     Dosage: 60 MG, Q6MO
     Dates: start: 20111101
  3. CALCIUM [Concomitant]
     Dosage: 900 MG, QD

REACTIONS (5)
  - UPPER RESPIRATORY TRACT INFECTION [None]
  - BLOOD CALCIUM DECREASED [None]
  - COUGH [None]
  - PRURITUS [None]
  - URINARY TRACT INFECTION [None]
